FAERS Safety Report 4749833-2 (Version None)
Quarter: 2005Q3

REPORT INFORMATION
  Report Type: 
  Country: None (occurrence: None)
  Receive Date: 20050822
  Receipt Date: 20050811
  Transmission Date: 20060218
  Serious: Yes (Other)
  Sender: FDA-Public Use
  Company Number: US-SANOFI-SYNTHELABO-A03200502489

PATIENT
  Sex: Female
  Weight: 56.69 kg

DRUGS (11)
  1. PLAVIX [Suspect]
     Indication: STENT PLACEMENT
     Route: 048
     Dates: start: 20000101
  2. ECOTRIN [Concomitant]
     Route: 048
     Dates: start: 19910101
  3. TOPROL-XL [Concomitant]
     Route: 048
     Dates: start: 19990101
  4. ZOCOR [Concomitant]
     Route: 048
     Dates: start: 20020101
  5. LASIX [Concomitant]
     Route: 048
     Dates: start: 20010101
  6. VASOTEC RPD [Concomitant]
     Route: 048
     Dates: start: 19950101
  7. PROZAC [Concomitant]
     Route: 048
     Dates: start: 20000101
  8. TAPAZOLE [Concomitant]
     Route: 048
     Dates: start: 20000101
  9. MULTI-VITAMIN [Concomitant]
     Route: 048
  10. HUMULIN 70/30 [Concomitant]
     Dosage: 24 UNITS IN THE MORNING AND 20 UNITS IN THE EVENING
     Route: 058
     Dates: start: 19670101
  11. HUMULIN R [Concomitant]
     Dosage: SLIDING SCALE
     Route: 058
     Dates: start: 19670101

REACTIONS (7)
  - BLINDNESS UNILATERAL [None]
  - DRUG INEFFECTIVE [None]
  - EYE PAIN [None]
  - HEADACHE [None]
  - RETINAL HAEMORRHAGE [None]
  - STENT OCCLUSION [None]
  - VITREOUS HAEMORRHAGE [None]
